FAERS Safety Report 9116577 (Version 4)
Quarter: 2013Q2

REPORT INFORMATION
  Report Type: Report from Study
  Country: US (occurrence: US)
  Receive Date: 20130225
  Receipt Date: 20130408
  Transmission Date: 20140414
  Serious: Yes (Hospitalization, Other)
  Sender: FDA-Public Use
  Company Number: US-ABBOTT-13P-163-1052050-00

PATIENT
  Age: 67 Year
  Sex: Male
  Weight: 136 kg

DRUGS (6)
  1. HUMIRA [Suspect]
     Indication: PSORIATIC ARTHROPATHY
     Route: 058
     Dates: start: 201101
  2. HUMIRA [Suspect]
  3. OXYCODONE [Concomitant]
     Indication: PAIN
  4. VALIUM [Concomitant]
     Indication: MUSCLE SPASMS
  5. PROTONIX [Concomitant]
     Indication: GASTROOESOPHAGEAL REFLUX DISEASE
  6. IBUPROFEN [Concomitant]
     Indication: PAIN

REACTIONS (6)
  - Monoplegia [Recovered/Resolved]
  - Cholelithiasis [Unknown]
  - Spinal laminectomy [Unknown]
  - Dural tear [Unknown]
  - Foraminotomy [Unknown]
  - Pancreatitis [Unknown]
